FAERS Safety Report 15463896 (Version 1)
Quarter: 2018Q4

REPORT INFORMATION
  Report Type: Spontaneous
  Country: AU (occurrence: AU)
  Receive Date: 20181004
  Receipt Date: 20181004
  Transmission Date: 20190204
  Serious: Yes (Other)
  Sender: FDA-Public Use
  Company Number: AU-MYLANLABS-2018M1070941

PATIENT
  Age: 28 Year
  Sex: Female

DRUGS (9)
  1. RANITIDINE. [Concomitant]
     Active Substance: RANITIDINE
     Indication: PRODUCT USED FOR UNKNOWN INDICATION
     Dosage: 150 MG, QD
     Route: 065
  2. METFORMIN [Concomitant]
     Active Substance: METFORMIN HYDROCHLORIDE
     Indication: PRODUCT USED FOR UNKNOWN INDICATION
     Dosage: 500MG THREE TIMES A DAY
     Route: 065
  3. INSULIN [Concomitant]
     Active Substance: INSULIN NOS
     Indication: PRODUCT USED FOR UNKNOWN INDICATION
     Dosage: PUMP
     Route: 065
  4. PREDNISONE. [Suspect]
     Active Substance: PREDNISONE
     Indication: HERPES GESTATIONIS
     Dosage: INCREASED TO 35MG/DAY
     Route: 065
  5. CROMOLYN SODIUM. [Concomitant]
     Active Substance: CROMOLYN SODIUM
     Indication: HERPES GESTATIONIS
     Dosage: 150 MG, QD
     Route: 048
  6. IMMUNOGLOBULIN                     /00025201/ [Concomitant]
     Active Substance: HUMAN IMMUNOGLOBULIN G
     Indication: PRODUCT USED FOR UNKNOWN INDICATION
     Dosage: 2 G/KG DIVIDED OVER 3 DAYS EVERY 4 WEEKS
     Route: 042
  7. PREDNISONE. [Suspect]
     Active Substance: PREDNISONE
     Dosage: 35 MG, QD
     Route: 065
  8. DOXYCYCLINE. [Suspect]
     Active Substance: DOXYCYCLINE
     Indication: HERPES GESTATIONIS
     Dosage: 100 MG, BID
     Route: 065
     Dates: start: 201711
  9. ERYTHROMYCIN. [Concomitant]
     Active Substance: ERYTHROMYCIN
     Indication: HERPES GESTATIONIS
     Dosage: 400 MG, TID
     Route: 065
     Dates: end: 201711

REACTIONS (6)
  - Exposure via breast milk [Unknown]
  - Skin striae [Unknown]
  - Nausea [Unknown]
  - Drug ineffective [Unknown]
  - Blood glucose fluctuation [Recovering/Resolving]
  - Maternal exposure during pregnancy [Recovered/Resolved]
